FAERS Safety Report 4945828-4 (Version None)
Quarter: 2006Q1

REPORT INFORMATION
  Report Type: 
  Country: None (occurrence: None)
  Receive Date: 20060117
  Receipt Date: 20050907
  Transmission Date: 20060701
  Serious: Yes (Hospitalization)
  Sender: FDA-Public Use
  Company Number: A03200502858

PATIENT
  Age: 61 Year
  Sex: Female
  Weight: 68 kg

DRUGS (7)
  1. PLAVIX [Suspect]
     Dosage: 75 MG QD -ORAL
     Route: 048
  2. ENOXAPARIN SODIUM -SOLUTION-45 MG [Suspect]
     Dosage: 45 MG Q12 HR-SUBCUTANEOUS
     Route: 058
  3. FUROSEMIDE [Concomitant]
  4. NIFEDIPINE [Concomitant]
  5. HYDRALAZINE [Concomitant]
  6. ATPRVASTATOM [Concomitant]
  7. CLONIDINE [Concomitant]

REACTIONS (2)
  - HAEMOGLOBIN DECREASED [None]
  - RETROPERITONEAL HAEMATOMA [None]
